FAERS Safety Report 8495632-8 (Version None)
Quarter: 2012Q3

REPORT INFORMATION
  Report Type: 
  Country: None (occurrence: None)
  Receive Date: 20120709
  Receipt Date: 20120627
  Transmission Date: 20120928
  Serious: Yes (Other)
  Sender: FDA-Public Use
  Company Number: DE-ROCHE-1082934

PATIENT
  Age: 69 Year
  Sex: Male

DRUGS (1)
  1. ZELBORAF [Suspect]
     Indication: METASTATIC MALIGNANT MELANOMA
     Dates: end: 20120614

REACTIONS (5)
  - RASH [None]
  - ERYTHEMA [None]
  - CONJUNCTIVAL DISORDER [None]
  - ARTHRALGIA [None]
  - SKIN PAPILLOMA [None]
